FAERS Safety Report 11212050 (Version 2)
Quarter: 2015Q3

REPORT INFORMATION
  Report Type: Spontaneous
  Country: JP (occurrence: JP)
  Receive Date: 20150623
  Receipt Date: 20150708
  Transmission Date: 20151125
  Serious: Yes (Other)
  Sender: FDA-Public Use
  Company Number: JP-PFIZER INC-2015206853

PATIENT
  Age: 9 Decade
  Sex: Female

DRUGS (2)
  1. CELECOX [Suspect]
     Active Substance: CELECOXIB
     Indication: OSTEOARTHRITIS
     Dosage: 200 MG, 1X/DAY
     Route: 048
     Dates: start: 20150612, end: 20150615
  2. SELBEX [Suspect]
     Active Substance: TEPRENONE
     Dosage: 150 MG, 1X/DAY
     Route: 048
     Dates: start: 20150612, end: 20150615

REACTIONS (2)
  - Disease progression [Unknown]
  - Dementia [Unknown]

NARRATIVE: CASE EVENT DATE: 20150613
